FAERS Safety Report 24144662 (Version 5)
Quarter: 2024Q4

REPORT INFORMATION
  Report Type: Report from Study
  Country: JP (occurrence: JP)
  Receive Date: 20240728
  Receipt Date: 20241219
  Transmission Date: 20250114
  Serious: Yes (Hospitalization, Other)
  Sender: SANOFI AVENTIS
  Company Number: JP-SAKK-2024SA049415AA

PATIENT
  Age: 21 Year
  Sex: Female

DRUGS (9)
  1. AVALGLUCOSIDASE ALFA [Suspect]
     Active Substance: AVALGLUCOSIDASE ALFA
     Indication: Glycogen storage disease type II
     Dosage: 700 MG, QOW
     Route: 041
     Dates: start: 20221206, end: 20231219
  2. AVALGLUCOSIDASE ALFA [Suspect]
     Active Substance: AVALGLUCOSIDASE ALFA
     Dosage: 700 MG, QOW
     Route: 041
     Dates: start: 20240111, end: 20240208
  3. AVALGLUCOSIDASE ALFA [Suspect]
     Active Substance: AVALGLUCOSIDASE ALFA
     Dosage: 700 MG, 1X
     Route: 041
     Dates: start: 20240227, end: 20240227
  4. AVALGLUCOSIDASE ALFA [Suspect]
     Active Substance: AVALGLUCOSIDASE ALFA
     Dosage: 700 MG, 1X
     Route: 041
     Dates: start: 20240314, end: 20240314
  5. AVALGLUCOSIDASE ALFA [Suspect]
     Active Substance: AVALGLUCOSIDASE ALFA
     Dosage: 700 MG, QOW
     Route: 041
     Dates: start: 20240425, end: 20240523
  6. AVALGLUCOSIDASE ALFA [Suspect]
     Active Substance: AVALGLUCOSIDASE ALFA
     Dosage: 700 MG, QOW
     Route: 041
     Dates: start: 20240620, end: 20240801
  7. AVALGLUCOSIDASE ALFA [Suspect]
     Active Substance: AVALGLUCOSIDASE ALFA
     Dosage: 700 MG, QOW
     Route: 041
     Dates: start: 20240822, end: 20241017
  8. AVALGLUCOSIDASE ALFA [Suspect]
     Active Substance: AVALGLUCOSIDASE ALFA
     Dosage: 700 MG, QOW
     Route: 041
     Dates: start: 20241029, end: 20241210
  9. EPINASTINE HYDROCHLORIDE [Concomitant]
     Active Substance: EPINASTINE HYDROCHLORIDE
     Indication: Prophylaxis
     Dosage: DOSE: 20 MG
     Route: 048

REACTIONS (3)
  - Cerebral infarction [Recovering/Resolving]
  - Cerebral infarction [Recovering/Resolving]
  - Asthma [Recovering/Resolving]

NARRATIVE: CASE EVENT DATE: 20221208
